FAERS Safety Report 10675690 (Version 2)
Quarter: 2014Q4

REPORT INFORMATION
  Report Type: Spontaneous
  Country: US (occurrence: US)
  Receive Date: 20141224
  Receipt Date: 20141224
  Transmission Date: 20150529
  Serious: No
  Sender: FDA-Public Use
  Company Number: US-BAUSCH-SYM-2013-14580

PATIENT
  Age: 61 Year
  Sex: Male

DRUGS (4)
  1. TRAZODONE [Concomitant]
     Active Substance: TRAZODONE HYDROCHLORIDE
     Indication: PRODUCT USED FOR UNKNOWN INDICATION
  2. XENAZINE [Suspect]
     Active Substance: TETRABENAZINE
     Dosage: 1 TABLET, 2 TIMES DAILY
     Route: 048
     Dates: start: 201402
  3. NUDEXA [Concomitant]
     Indication: PRODUCT USED FOR UNKNOWN INDICATION
  4. XENAZINE [Suspect]
     Active Substance: TETRABENAZINE
     Indication: HUNTINGTON^S DISEASE
     Dosage: 1 TABLET, 3 TIMES DAILY
     Route: 048
     Dates: start: 20131205, end: 201402

REACTIONS (12)
  - Lethargy [Not Recovered/Not Resolved]
  - Opisthotonus [Unknown]
  - Agitation [Not Recovered/Not Resolved]
  - Confusional state [Unknown]
  - Memory impairment [Unknown]
  - Psychomotor hyperactivity [Unknown]
  - Ocular hyperaemia [Unknown]
  - Somnolence [Recovering/Resolving]
  - Movement disorder [Recovered/Resolved]
  - Somnolence [Not Recovered/Not Resolved]
  - Fall [Unknown]
  - Hypokinesia [Not Recovered/Not Resolved]

NARRATIVE: CASE EVENT DATE: 2013
